FAERS Safety Report 4874478-3 (Version None)
Quarter: 2006Q1

REPORT INFORMATION
  Report Type: 
  Country: None (occurrence: None)
  Receive Date: 20060106
  Receipt Date: 20051128
  Transmission Date: 20060701
  Serious: Yes (Hospitalization)
  Sender: FDA-Public Use
  Company Number: JP-ROCHE-426891

PATIENT
  Age: 36 Year
  Sex: Female
  Weight: 53 kg

DRUGS (8)
  1. TAMIFLU [Suspect]
     Indication: INFLUENZA
     Route: 048
     Dates: start: 20050125, end: 20050130
  2. INTEBAN [Suspect]
     Dosage: DOSE FORM: RECTAL SUPPOSITORY NOTE: TAKEN FOR FEVER: 25MG
     Route: 061
  3. AZANIN [Concomitant]
     Route: 048
     Dates: start: 20010418
  4. PREDONINE [Concomitant]
     Route: 048
     Dates: start: 20010418
  5. NEORAL [Concomitant]
     Route: 048
     Dates: start: 20010418
  6. ISODINE [Concomitant]
     Dosage: ROUTE: OROPHARINGEAL FORM: GARGLE
     Route: 050
     Dates: start: 20010418
  7. URINORM [Concomitant]
     Route: 048
     Dates: start: 20020313
  8. GASTER [Concomitant]
     Route: 048
     Dates: start: 20030220

REACTIONS (4)
  - DEHYDRATION [None]
  - DIARRHOEA [None]
  - PSYCHIATRIC SYMPTOM [None]
  - RENAL FAILURE ACUTE [None]
